FAERS Safety Report 17839326 (Version 1)
Quarter: 2020Q2

REPORT INFORMATION
  Report Type: Spontaneous
  Country: BR (occurrence: US)
  Receive Date: 20200529
  Receipt Date: 20200529
  Transmission Date: 20200714
  Serious: No
  Sender: FDA-Public Use
  Company Number: BR-SHIRE-BR202015613

PATIENT

DRUGS (1)
  1. VENVANSE [Suspect]
     Active Substance: LISDEXAMFETAMINE DIMESYLATE
     Indication: ATTENTION DEFICIT HYPERACTIVITY DISORDER
     Dosage: 30 MILLIGRAM, UNKNOWN
     Route: 065
     Dates: start: 20200504, end: 202005

REACTIONS (2)
  - Drug ineffective [Unknown]
  - Product physical issue [Unknown]
